FAERS Safety Report 26112331 (Version 1)
Quarter: 2025Q4

REPORT INFORMATION
  Report Type: Spontaneous
  Country: US (occurrence: None)
  Receive Date: 20251201
  Receipt Date: 20251201
  Transmission Date: 20260118
  Serious: Yes (Hospitalization)
  Sender: FDA-CTU
  Company Number: None

PATIENT
  Sex: Female

DRUGS (3)
  1. AMBRISENTAN [Suspect]
     Active Substance: AMBRISENTAN
     Indication: Pulmonary arterial hypertension
     Dosage: 10 MG DAILY ORAL ?
     Route: 048
     Dates: start: 20230223
  2. ORENITRAM [Suspect]
     Active Substance: TREPROSTINIL
  3. SILDENAFIL [Suspect]
     Active Substance: SILDENAFIL

REACTIONS (7)
  - Sinus disorder [None]
  - Sinus operation [None]
  - Arthralgia [None]
  - Tinnitus [None]
  - Dyspnoea [None]
  - Heart rate increased [None]
  - Therapy interrupted [None]
